FAERS Safety Report 17168305 (Version 2)
Quarter: 2020Q1

REPORT INFORMATION
  Report Type: Spontaneous
  Country: US (occurrence: US)
  Receive Date: 20191218
  Receipt Date: 20200121
  Transmission Date: 20200409
  Serious: Yes (Other)
  Sender: FDA-Public Use
  Company Number: US-ASTRAZENECA-2018SF65289

PATIENT
  Age: 79 Year
  Sex: Male
  Weight: 94.8 kg

DRUGS (32)
  1. PLAVIX [Concomitant]
     Active Substance: CLOPIDOGREL BISULFATE
  2. METFORMIN ER [Concomitant]
     Active Substance: METFORMIN HYDROCHLORIDE
  3. TAMSULOSIN [Concomitant]
     Active Substance: TAMSULOSIN
  4. TERAZOSIN [Concomitant]
     Active Substance: TERAZOSIN HYDROCHLORIDE
  5. GLIPIZIDE. [Concomitant]
     Active Substance: GLIPIZIDE
  6. PREVACID [Suspect]
     Active Substance: LANSOPRAZOLE
     Indication: GASTROOESOPHAGEAL REFLUX DISEASE
     Dosage: IN AM
     Route: 065
     Dates: start: 2011, end: 2016
  7. AZITHROMYCIN ANHYDROUS. [Concomitant]
     Active Substance: AZITHROMYCIN ANHYDROUS
     Indication: INFECTION
     Route: 065
     Dates: start: 2013
  8. TOPROL XL [Concomitant]
     Active Substance: METOPROLOL SUCCINATE
  9. OMEPRAZOLE. [Suspect]
     Active Substance: OMEPRAZOLE
     Indication: GASTROOESOPHAGEAL REFLUX DISEASE
     Dosage: WAS TAKING FOR ABOUT 2 YEARS- TWICE A DAY
     Route: 065
  10. ALLOPURINOL. [Concomitant]
     Active Substance: ALLOPURINOL
     Indication: INFECTION
     Route: 065
     Dates: start: 2013
  11. PREVACID [Suspect]
     Active Substance: LANSOPRAZOLE
     Indication: GASTROOESOPHAGEAL REFLUX DISEASE
     Dosage: IN AM
     Route: 065
  12. PREVACID 24 HR [Suspect]
     Active Substance: LANSOPRAZOLE
     Indication: GASTROOESOPHAGEAL REFLUX DISEASE
     Dosage: TWICE A DAY
     Route: 065
     Dates: start: 2016
  13. ALLOPURINOL. [Concomitant]
     Active Substance: ALLOPURINOL
     Indication: GOUT
     Route: 065
     Dates: start: 2013
  14. TYLENOL [Concomitant]
     Active Substance: ACETAMINOPHEN
     Indication: PAIN
     Route: 065
     Dates: start: 2017
  15. RANITIDINE. [Concomitant]
     Active Substance: RANITIDINE
     Dosage: GENERIC
     Route: 065
     Dates: start: 2009
  16. LOMOTIL [Concomitant]
     Active Substance: ATROPINE SULFATE\DIPHENOXYLATE HYDROCHLORIDE
     Dosage: DAILY- TWICE
  17. PEPTO-BISMOL [Concomitant]
     Active Substance: BISMUTH SUBSALICYLATE
  18. ALLOPURINOL. [Concomitant]
     Active Substance: ALLOPURINOL
     Indication: INFECTION
     Route: 065
     Dates: start: 2017
  19. ALLOPURINOL. [Concomitant]
     Active Substance: ALLOPURINOL
     Indication: GOUT
     Route: 065
     Dates: start: 2017
  20. ASPIRIN. [Concomitant]
     Active Substance: ASPIRIN
     Indication: PAIN
     Route: 065
  21. MYLANTA [Concomitant]
     Active Substance: ALUMINUM HYDROXIDE\DIMETHICONE\MAGNESIUM HYDROXIDE
     Dosage: DAILY
  22. KAOPECTATE REGULAR STRENGTH CHERRY FLAVOR [Concomitant]
     Active Substance: BISMUTH SUBSALICYLATE
  23. PREVACID [Suspect]
     Active Substance: LANSOPRAZOLE
     Indication: GASTROOESOPHAGEAL REFLUX DISEASE
     Dosage: TWICE A DAY
     Route: 065
     Dates: start: 2011, end: 2016
  24. LISINOPRIL HCTZ [Concomitant]
     Active Substance: HYDROCHLOROTHIAZIDE\LISINOPRIL
     Indication: HYPERTENSION
     Route: 065
     Dates: start: 2009
  25. CIPROFLOXACIN. [Concomitant]
     Active Substance: CIPROFLOXACIN
     Indication: INFECTION
     Route: 065
     Dates: start: 2011
  26. ASPIRIN. [Concomitant]
     Active Substance: ASPIRIN
     Indication: PAIN
     Route: 065
     Dates: start: 2017
  27. METAMUCIL [Concomitant]
     Active Substance: PLANTAGO SEED
     Dosage: DAILY
  28. SIMETHICONE (DIMETHICONE) [Concomitant]
     Active Substance: DIMETHICONE
  29. GABAPENTIN. [Concomitant]
     Active Substance: GABAPENTIN
  30. TYLENOL [Concomitant]
     Active Substance: ACETAMINOPHEN
     Indication: PAIN
     Route: 065
  31. LORAZEPAM. [Concomitant]
     Active Substance: LORAZEPAM
  32. VITAMIN D3 [Concomitant]
     Active Substance: CHOLECALCIFEROL

REACTIONS (5)
  - Acute kidney injury [Recovering/Resolving]
  - Chronic kidney disease [Not Recovered/Not Resolved]
  - Renal injury [Unknown]
  - Renal failure [Unknown]
  - Hyperparathyroidism secondary [Unknown]

NARRATIVE: CASE EVENT DATE: 2010
